FAERS Safety Report 17534803 (Version 1)
Quarter: 2020Q1

REPORT INFORMATION
  Report Type: Spontaneous
  Country: NL (occurrence: ES)
  Receive Date: 20200312
  Receipt Date: 20200312
  Transmission Date: 20200409
  Serious: Yes (Hospitalization, Other)
  Sender: FDA-Public Use
  Company Number: ES-FRESENIUS KABI-FK202002314

PATIENT
  Age: 2 Day
  Sex: Male

DRUGS (1)
  1. GLUCOSE 10% (MANUFACTURER UNKNOWN) [Suspect]
     Active Substance: DEXTROSE
     Indication: PRODUCT USED FOR UNKNOWN INDICATION
     Dosage: GLUCOSE 10%, INTRAVENOUS, NORMAL DOSAGE FOR NEWBORN ACCORDING TO WEIGHT.
     Route: 042
     Dates: start: 20200206

REACTIONS (2)
  - Instillation site burn [Unknown]
  - Paravenous drug administration [Unknown]

NARRATIVE: CASE EVENT DATE: 20200206
